FAERS Safety Report 11591683 (Version 1)
Quarter: 2015Q4

REPORT INFORMATION
  Report Type: Spontaneous
  Country: US (occurrence: US)
  Receive Date: 20151005
  Receipt Date: 20151005
  Transmission Date: 20160304
  Serious: No
  Sender: FDA-Public Use
  Company Number: US-NOVEN PHARMACEUTICALS, INC.-US2015000304

PATIENT
  Age: 55 Year
  Sex: Female

DRUGS (1)
  1. COMBIPATCH [Suspect]
     Active Substance: ESTRADIOL\NORETHINDRONE ACETATE
     Indication: HOT FLUSH
     Dosage: 50/250
     Route: 062
     Dates: start: 2014

REACTIONS (4)
  - Application site burn [Unknown]
  - Application site erythema [Unknown]
  - Application site rash [Unknown]
  - Application site pain [Unknown]

NARRATIVE: CASE EVENT DATE: 201503
